FAERS Safety Report 8339031-8 (Version None)
Quarter: 2012Q2

REPORT INFORMATION
  Report Type: 
  Country: None (occurrence: None)
  Receive Date: 20120502
  Receipt Date: 20120419
  Transmission Date: 20120825
  Serious: Yes (Other)
  Sender: FDA-Public Use
  Company Number: KAD201204-000253

PATIENT
  Age: 64 Year
  Sex: Male
  Weight: 95.2554 kg

DRUGS (4)
  1. PEGASYS [Suspect]
     Indication: HEPATITIS C
     Dosage: ^180^ (UNITS UNSPECIFIED), SUBCUTANEOUS
     Route: 058
     Dates: start: 20110101, end: 20120412
  2. INCIVEK [Suspect]
     Indication: HEPATITIS C
     Dosage: ORAL
     Route: 048
     Dates: start: 20110101
  3. RIBAVIRIN [Suspect]
     Indication: HEPATITIS C
     Dosage: 1200 MG DAILY, ORAL
     Route: 048
     Dates: start: 20110101, end: 20120418
  4. XANAX [Concomitant]

REACTIONS (8)
  - POSTURE ABNORMAL [None]
  - DYSGEUSIA [None]
  - HAND FRACTURE [None]
  - WEIGHT DECREASED [None]
  - APATHY [None]
  - FATIGUE [None]
  - DECREASED APPETITE [None]
  - IMPAIRED WORK ABILITY [None]
